FAERS Safety Report 5795367-6 (Version None)
Quarter: 2008Q2

REPORT INFORMATION
  Report Type: 
  Country: None (occurrence: None)
  Receive Date: 20080626
  Receipt Date: 20080616
  Transmission Date: 20081010
  Serious: Yes (Hospitalization)
  Sender: FDA-Public Use
  Company Number: 2008AL007055

PATIENT
  Sex: Female

DRUGS (1)
  1. DIGOXIN [Suspect]
     Dosage: 0.125MG

REACTIONS (12)
  - BLOOD GLUCOSE INCREASED [None]
  - COMMUNICATION DISORDER [None]
  - CYSTITIS [None]
  - GASTROINTESTINAL DISORDER [None]
  - HYPOXIA [None]
  - LETHARGY [None]
  - NAUSEA [None]
  - PAIN [None]
  - PULMONARY CONGESTION [None]
  - THERAPEUTIC AGENT TOXICITY [None]
  - VISUAL DISTURBANCE [None]
  - VOMITING [None]
